FAERS Safety Report 8983673 (Version 1)
Quarter: 2012Q4

REPORT INFORMATION
  Report Type: 
  Country: FR (occurrence: FR)
  Receive Date: 20121224
  Receipt Date: 20121224
  Transmission Date: 20130627
  Serious: Yes (Hospitalization)
  Sender: FDA-Public Use
  Company Number: FR-BRISTOL-MYERS SQUIBB COMPANY-17217183

PATIENT
  Age: 87 Year
  Sex: Male

DRUGS (8)
  1. COAPROVEL TABS 150MG/12.5MG [Suspect]
     Indication: HYPERTENSION
     Route: 048
     Dates: end: 20121025
  2. SEROPLEX [Suspect]
     Indication: DEPRESSION
     Dates: end: 20121025
  3. SYMBICORT [Suspect]
     Route: 055
     Dates: end: 20121030
  4. IXPRIM [Suspect]
     Route: 048
     Dates: end: 20121025
  5. XANAX [Concomitant]
  6. IMOVANE [Concomitant]
  7. DOLIPRANE [Concomitant]
  8. TRAVATAN [Concomitant]

REACTIONS (2)
  - Hypotension [Recovered/Resolved]
  - Dehydration [Recovered/Resolved]
